FAERS Safety Report 15124447 (Version 11)
Quarter: 2019Q2

REPORT INFORMATION
  Report Type: Report from Study
  Country: PL (occurrence: PL)
  Receive Date: 20180710
  Receipt Date: 20190528
  Transmission Date: 20190711
  Serious: Yes (Hospitalization, Disabling)
  Sender: FDA-Public Use
  Company Number: PL-ROCHE-2002853

PATIENT
  Age: 68 Year
  Sex: Male
  Weight: 71 kg

DRUGS (15)
  1. ENCORTON [PREDNISONE] [Concomitant]
     Active Substance: PREDNISONE
     Route: 048
     Dates: start: 20170614, end: 20170803
  2. TEVAGRASTIM [Concomitant]
     Active Substance: FILGRASTIM
     Indication: GRANULOCYTOPENIA
     Route: 058
     Dates: start: 20170531, end: 20170606
  3. CEFUROXIM [CEFUROXIME] [Concomitant]
     Indication: PHARYNGITIS
     Route: 065
     Dates: start: 20170511, end: 20170516
  4. CONCOR [Concomitant]
     Active Substance: BISOPROLOL FUMARATE
     Route: 048
  5. CEFTRIAXONE. [Concomitant]
     Active Substance: CEFTRIAXONE
     Indication: GRANULOCYTOPENIA
     Route: 042
     Dates: start: 20170531, end: 20170606
  6. RED BLOOD CELLS, CONCENTRATED [Concomitant]
     Active Substance: HUMAN RED BLOOD CELL
     Indication: ANAEMIA
     Dosage: 2 UNITS
     Route: 042
     Dates: start: 20170601, end: 20170601
  7. PLATELETS [Concomitant]
     Active Substance: HUMAN PLATELET, ALLOGENIC
     Indication: THROMBOCYTOPENIA
     Dosage: 2 UNITS
     Route: 042
     Dates: start: 20170531, end: 20170601
  8. XORIMAX [Concomitant]
     Active Substance: CEFUROXIME AXETIL
     Indication: PHARYNGITIS
     Route: 048
     Dates: start: 20170517, end: 20170521
  9. APAP [Concomitant]
     Active Substance: ACETAMINOPHEN
     Indication: PHARYNGITIS
     Route: 065
     Dates: start: 20170511, end: 20170516
  10. FLUKONAZOL [Concomitant]
     Active Substance: FLUCONAZOLE
     Indication: GRANULOCYTOPENIA
     Route: 042
     Dates: start: 20170531, end: 20170606
  11. ATEZOLIZUMAB. [Suspect]
     Active Substance: ATEZOLIZUMAB
     Indication: NEOPLASM
     Dosage: MOST RECENT DOSE PRIOR TO AE ONSET: 28/APR/2017 AT 14.50 HOUR
     Route: 042
     Dates: start: 20170428, end: 201706
  12. ENCORTON [PREDNISONE] [Concomitant]
     Active Substance: PREDNISONE
     Indication: GRANULOCYTOPENIA
     Route: 048
     Dates: start: 20170531, end: 20170613
  13. TAROMENTIN [AMOXICILLIN;CLAVULANIC ACID] [Concomitant]
     Indication: PHARYNGITIS
     Route: 065
     Dates: start: 20170511, end: 20170516
  14. LACIDOENTER [Concomitant]
     Indication: PHARYNGITIS
     Route: 048
     Dates: start: 20170517, end: 20170521
  15. PYRALGINA [Concomitant]
     Active Substance: METAMIZOLE MAGNESIUM
     Indication: PHARYNGITIS
     Route: 065
     Dates: start: 20170511, end: 20170516

REACTIONS (2)
  - Aplastic anaemia [Not Recovered/Not Resolved]
  - Anaemia [Recovered/Resolved with Sequelae]

NARRATIVE: CASE EVENT DATE: 20170523
